FAERS Safety Report 7809371-7 (Version None)
Quarter: 2011Q4

REPORT INFORMATION
  Report Type: 
  Country: None (occurrence: None)
  Receive Date: 20111012
  Receipt Date: 20111004
  Transmission Date: 20120403
  Serious: Yes (Disabling, Other)
  Sender: FDA-Public Use
  Company Number: JP-B.I. PHARMACEUTICALS,INC./RIDGEFIELD-2011-BP-20973NB

PATIENT
  Sex: Female
  Weight: 62 kg

DRUGS (5)
  1. PRADAXA [Suspect]
     Dosage: 150 MG
     Route: 048
     Dates: start: 20110712, end: 20110726
  2. DIGOXIN [Concomitant]
     Dosage: 0.1 MG
     Route: 048
     Dates: start: 20110623, end: 20110805
  3. PRADAXA [Suspect]
     Dosage: 220 MG
     Route: 048
     Dates: start: 20110603, end: 20110711
  4. FAMOTIDINE [Concomitant]
     Dosage: 20 MG
     Route: 048
     Dates: start: 20110607
  5. LANIRAPID [Concomitant]
     Dosage: 0.05 MG
     Route: 048
     Dates: start: 20110729

REACTIONS (3)
  - DELIRIUM [None]
  - NEUROGENIC BLADDER [None]
  - INTERNATIONAL NORMALISED RATIO INCREASED [None]
